FAERS Safety Report 16933198 (Version 1)
Quarter: 2019Q4

REPORT INFORMATION
  Report Type: Report from Study
  Country: None (occurrence: US)
  Receive Date: 20191018
  Receipt Date: 20191018
  Transmission Date: 20200122
  Serious: Yes (Other)
  Sender: FDA-Public Use
  Company Number: US-ABBVIE-19K-163-2966520-00

PATIENT
  Age: 66 Year
  Sex: Male

DRUGS (1)
  1. MAVYRET [Suspect]
     Active Substance: GLECAPREVIR\PIBRENTASVIR
     Indication: PRODUCT USED FOR UNKNOWN INDICATION
     Route: 048
     Dates: start: 20171023, end: 20180115

REACTIONS (7)
  - Influenza like illness [Unknown]
  - Respiratory distress [Unknown]
  - Hypoxia [Unknown]
  - Abdominal discomfort [Unknown]
  - Acute kidney injury [Unknown]
  - Dysgeusia [Unknown]
  - Hypervolaemia [Unknown]

NARRATIVE: CASE EVENT DATE: 20171024
